FAERS Safety Report 4798638-5 (Version None)
Quarter: 2005Q4

REPORT INFORMATION
  Report Type: 
  Country: None (occurrence: None)
  Receive Date: 20051014
  Receipt Date: 20051006
  Transmission Date: 20060501
  Serious: Yes (Life-Threatening, Hospitalization, Other)
  Sender: FDA-Public Use
  Company Number: US-JNJFOC-20040802144

PATIENT
  Sex: Male

DRUGS (3)
  1. REGULAR STRENGTH TYLENOL [Suspect]
  2. REGULAR STRENGTH TYLENOL [Suspect]
     Indication: TOOTHACHE
  3. IBUPROFEN [Concomitant]

REACTIONS (6)
  - ABDOMINAL PAIN UPPER [None]
  - ANALGESIC DRUG LEVEL INCREASED [None]
  - HEPATIC FAILURE [None]
  - NAUSEA [None]
  - RENAL DISORDER [None]
  - VOMITING [None]
